FAERS Safety Report 8785877 (Version 1)
Quarter: 2012Q4

REPORT INFORMATION
  Report Type: 
  Country: GB (occurrence: GB)
  Receive Date: 20120914
  Receipt Date: 20120914
  Transmission Date: 20130627
  Serious: Yes (Hospitalization)
  Sender: FDA-Public Use
  Company Number: GB-PFIZER INC-GB-WYE-H12058609

PATIENT
  Age: 37 Year
  Sex: Male

DRUGS (7)
  1. TAZOCIN [Suspect]
     Indication: NEUTROPENIC SEPSIS
     Dosage: unknown
     Route: 065
     Dates: start: 2008, end: 2008
  2. CLINDAMYCIN HCL [Suspect]
     Indication: NEUTROPENIC SEPSIS
     Dosage: unknown
     Route: 065
     Dates: start: 2008, end: 2008
  3. METRONIDAZOLE [Suspect]
     Indication: NEUTROPENIC SEPSIS
     Dosage: UNK
     Dates: start: 2008, end: 2008
  4. AMOXICILLIN [Suspect]
  5. CIPROFLOXACIN HCL [Suspect]
     Indication: NEUTROPENIC SEPSIS
     Dosage: UNK
     Dates: start: 2008, end: 2008
  6. GENTAMICIN [Suspect]
     Indication: NEUTROPENIC SEPSIS
     Dosage: UNK
     Dates: start: 2008, end: 2008
  7. PREDNISOLONE [Concomitant]
     Dosage: 30 mg
     Route: 048
     Dates: start: 2008

REACTIONS (1)
  - Drug reaction with eosinophilia and systemic symptoms [Recovered/Resolved]
